FAERS Safety Report 14492310 (Version 1)
Quarter: 2018Q1

REPORT INFORMATION
  Report Type: Spontaneous
  Country: US (occurrence: US)
  Receive Date: 20180205
  Receipt Date: 20180205
  Transmission Date: 20180509
  Serious: Yes (Death)
  Sender: FDA-Public Use
  Company Number: None

PATIENT
  Sex: Female

DRUGS (12)
  1. PACLITAXEL 150/25ML MDV [Suspect]
     Active Substance: PACLITAXEL
  2. OXYCONTIN [Concomitant]
     Active Substance: OXYCODONE HYDROCHLORIDE
  3. ONDANSETRON [Concomitant]
     Active Substance: ONDANSETRON
  4. LOVENOX [Concomitant]
     Active Substance: ENOXAPARIN SODIUM
  5. SPIRONOLACT [Concomitant]
     Active Substance: SPIRONOLACTONE
  6. REMERON [Concomitant]
     Active Substance: MIRTAZAPINE
  7. DIPHENHYDRAMINE. [Concomitant]
     Active Substance: DIPHENHYDRAMINE
  8. FAMOTIDINE. [Concomitant]
     Active Substance: FAMOTIDINE
  9. OXYCODONE [Concomitant]
     Active Substance: OXYCODONE
  10. DEXAMETH PHOS [Concomitant]
  11. PACLITAXEL 150/25ML MDV [Suspect]
     Active Substance: PACLITAXEL
     Indication: CARCINOID TUMOUR
     Route: 042
  12. SODIUM CHLORIDE. [Concomitant]
     Active Substance: SODIUM CHLORIDE

REACTIONS (1)
  - Death [None]
